FAERS Safety Report 6993224 (Version 3)
Quarter: 2016Q3

REPORT INFORMATION
  Report Type: Spontaneous
  Country: US (occurrence: US)
  Receive Date: 20090513
  Receipt Date: 20160705
  Transmission Date: 20161109
  Serious: Yes (Other)
  Sender: FDA-Public Use
  Company Number: US-BAYER-200920329NA

PATIENT
  Age: 24 Year
  Sex: Female
  Weight: 81.63 kg

DRUGS (1)
  1. MIRENA [Suspect]
     Active Substance: LEVONORGESTREL
     Indication: CONTRACEPTION
     Dosage: CONTINUOUS
     Route: 015
     Dates: start: 20070529, end: 20090519

REACTIONS (7)
  - Infection [Unknown]
  - Headache [Unknown]
  - Pain [None]
  - Pyrexia [Unknown]
  - Somatic symptom disorder [None]
  - Device use issue [None]
  - Uterine perforation [None]

NARRATIVE: CASE EVENT DATE: 2009
